FAERS Safety Report 25128785 (Version 4)
Quarter: 2025Q2

REPORT INFORMATION
  Report Type: Spontaneous
  Country: US (occurrence: US)
  Receive Date: 20250327
  Receipt Date: 20250613
  Transmission Date: 20250716
  Serious: No
  Sender: SANOFI AVENTIS
  Company Number: US-SA-2025SA087374

PATIENT
  Age: 33 Year
  Sex: Female

DRUGS (2)
  1. DUPIXENT [Suspect]
     Active Substance: DUPILUMAB
     Indication: Dermatitis atopic
     Route: 058
     Dates: start: 20250220, end: 20250220
  2. DUPIXENT [Suspect]
     Active Substance: DUPILUMAB
     Indication: Eczema
     Dosage: 300 MG, QOW
     Route: 058
     Dates: start: 2025

REACTIONS (10)
  - Mental status changes [Unknown]
  - General physical health deterioration [Unknown]
  - Pain [Unknown]
  - Musculoskeletal stiffness [Unknown]
  - Joint stiffness [Not Recovered/Not Resolved]
  - Inflammation [Unknown]
  - Rebound eczema [Not Recovered/Not Resolved]
  - Pruritus [Recovered/Resolved]
  - Dry eye [Recovered/Resolved]
  - Rash [Unknown]

NARRATIVE: CASE EVENT DATE: 20250101
